FAERS Safety Report 21364495 (Version 2)
Quarter: 2022Q4

REPORT INFORMATION
  Report Type: Spontaneous
  Country: CA (occurrence: MX)
  Receive Date: 20220922
  Receipt Date: 20221007
  Transmission Date: 20230113
  Serious: Yes (Hospitalization, Other)
  Sender: FDA-Public Use
  Company Number: CA-VERTEX PHARMACEUTICALS-2022-013527

PATIENT
  Age: 21 Year
  Sex: Female

DRUGS (7)
  1. TRIKAFTA [Suspect]
     Active Substance: ELEXACAFTOR\IVACAFTOR\TEZACAFTOR
     Indication: Cystic fibrosis
     Dosage: TWO TABLETS
     Route: 048
     Dates: start: 20220605, end: 20220709
  2. TRIKAFTA [Suspect]
     Active Substance: ELEXACAFTOR\IVACAFTOR\TEZACAFTOR
     Dosage: TWO TABLETS
     Route: 048
     Dates: start: 20220908
  3. BUDESONIDE\FORMOTEROL [Concomitant]
     Active Substance: BUDESONIDE\FORMOTEROL
  4. ALBUTEROL [Concomitant]
     Active Substance: ALBUTEROL
  5. INSULIN NOS [Concomitant]
     Active Substance: INSULIN NOS
  6. AZITHROMYCIN [Concomitant]
     Active Substance: AZITHROMYCIN
  7. TOBRAMYCIN [Concomitant]
     Active Substance: TOBRAMYCIN

REACTIONS (4)
  - Hypercapnia [Recovering/Resolving]
  - Increased bronchial secretion [Unknown]
  - Increased viscosity of bronchial secretion [Unknown]
  - Product dose omission issue [Recovered/Resolved]

NARRATIVE: CASE EVENT DATE: 20220710
